FAERS Safety Report 8340315-8 (Version None)
Quarter: 2012Q2

REPORT INFORMATION
  Report Type: 
  Country: None (occurrence: None)
  Receive Date: 20120507
  Receipt Date: 20120507
  Transmission Date: 20120825
  Serious: Yes (Hospitalization)
  Sender: FDA-Public Use
  Company Number: None

PATIENT
  Age: 66 Year
  Sex: Female
  Weight: 85.9 kg

DRUGS (1)
  1. LISINOPRIL [Suspect]
     Dosage: |DOSAGETEXT: 40 MG||STRENGTH: 40 MG||FREQ: TWICE DAILY||ROUTE: ORAL|
     Route: 048

REACTIONS (2)
  - SPEECH DISORDER [None]
  - ANGIOEDEMA [None]
